FAERS Safety Report 25867452 (Version 3)
Quarter: 2025Q4

REPORT INFORMATION
  Report Type: Spontaneous
  Country: US (occurrence: US)
  Receive Date: 20251001
  Receipt Date: 20251028
  Transmission Date: 20260118
  Serious: Yes (Hospitalization, Other)
  Sender: ASSERTIO THERAPEUTICS
  Company Number: US-ASSERTIO THERAPEUTICS, INC.-US-2025AST000475

PATIENT
  Age: 45 Year
  Sex: Male

DRUGS (2)
  1. DICLOFENAC [Suspect]
     Active Substance: DICLOFENAC
     Indication: Gout
     Dosage: 1 DOSAGE FORM, BID, PER NEED, A TOTAL OF ~ 100 PILLS IN THE PAST YEAR
     Route: 048
     Dates: start: 201708, end: 201807
  2. DICLOFENAC [Suspect]
     Active Substance: DICLOFENAC
     Dosage: 1 DOSAGE FORM, BID, PER NEED, A TOTAL OF ~ 100 PILLS IN THE PAST YEAR
     Route: 048
     Dates: start: 201708, end: 201807

REACTIONS (5)
  - Glomerulonephritis minimal lesion [Recovered/Resolved]
  - IgA nephropathy [Recovered/Resolved]
  - Renal tubular injury [Recovered/Resolved]
  - Off label use [Unknown]
  - Tubulointerstitial nephritis [Recovered/Resolved]

NARRATIVE: CASE EVENT DATE: 20180701
